FAERS Safety Report 8391209-3 (Version None)
Quarter: 2012Q2

REPORT INFORMATION
  Report Type: 
  Country: None (occurrence: None)
  Receive Date: 20120529
  Receipt Date: 20120518
  Transmission Date: 20120825
  Serious: Yes (Other)
  Sender: FDA-Public Use
  Company Number: JP-JNJFOC-20120517038

PATIENT

DRUGS (1)
  1. ITRACONAZOLE [Suspect]
     Indication: PRODUCT USED FOR UNKNOWN INDICATION
     Dosage: BEFORE BREAKFAST, FOR 14 DAYS
     Route: 048
     Dates: start: 20120427

REACTIONS (4)
  - CONVULSION [None]
  - PYREXIA [None]
  - NASOPHARYNGITIS [None]
  - DIARRHOEA [None]
